FAERS Safety Report 7716207-1 (Version None)
Quarter: 2011Q3

REPORT INFORMATION
  Report Type: 
  Country: None (occurrence: None)
  Receive Date: 20110829
  Receipt Date: 20110617
  Transmission Date: 20111222
  Serious: Yes (Other)
  Sender: FDA-Public Use
  Company Number: CN-BAYER-2011-052803

PATIENT
  Sex: Female

DRUGS (1)
  1. MIRENA [Suspect]
     Indication: MENORRHAGIA
     Dosage: 20 MCG/24HR, UNK
     Route: 015
     Dates: start: 20100501

REACTIONS (3)
  - HEADACHE [None]
  - MUSCULOSKELETAL DISCOMFORT [None]
  - HYPERTHYROIDISM [None]
